FAERS Safety Report 18800487 (Version 1)
Quarter: 2021Q1

REPORT INFORMATION
  Report Type: Report from Study
  Country: US (occurrence: US)
  Receive Date: 20210128
  Receipt Date: 20210128
  Transmission Date: 20210419
  Serious: Yes (Other)
  Sender: FDA-Public Use
  Company Number: US-JNJFOC-20210139096

PATIENT
  Age: 44 Year
  Sex: Male

DRUGS (5)
  1. SPRAVATO [Suspect]
     Active Substance: ESKETAMINE
     Indication: DEPRESSION
     Dosage: TOTAL OF 16 DOSES
     Dates: start: 20191007, end: 20200325
  2. SPRAVATO [Suspect]
     Active Substance: ESKETAMINE
     Dosage: TOTAL OF 3 DOSES
     Dates: start: 20200602, end: 20200921
  3. SPRAVATO [Suspect]
     Active Substance: ESKETAMINE
     Dates: start: 20210120, end: 20210120
  4. SPRAVATO [Suspect]
     Active Substance: ESKETAMINE
     Dosage: TOTAL OF 3 DOSES
     Dates: start: 20201123, end: 20201221
  5. SPRAVATO [Suspect]
     Active Substance: ESKETAMINE
     Dosage: TOTAL OF 2 DOSES
     Dates: start: 20201005, end: 20201019

REACTIONS (1)
  - Dependence [Unknown]

NARRATIVE: CASE EVENT DATE: 20210120
